FAERS Safety Report 13682877 (Version 1)
Quarter: 2017Q2

REPORT INFORMATION
  Report Type: Spontaneous
  Country: US (occurrence: US)
  Receive Date: 20170623
  Receipt Date: 20170623
  Transmission Date: 20170830
  Serious: No
  Sender: FDA-Public Use
  Company Number: US-MALLINCKRODT-T201701029

PATIENT
  Sex: Male

DRUGS (1)
  1. H.P. ACTHAR [Suspect]
     Active Substance: CORTICOTROPIN
     Indication: MACULAR OEDEMA
     Dosage: 80 UNITS/ 1 ML, TWICE PER WEEK
     Route: 058

REACTIONS (4)
  - Hiccups [Unknown]
  - Fluid retention [Unknown]
  - Drug effect decreased [Unknown]
  - Headache [Unknown]
